FAERS Safety Report 8201093-6 (Version None)
Quarter: 2012Q1

REPORT INFORMATION
  Report Type: 
  Country: None (occurrence: None)
  Receive Date: 20120312
  Receipt Date: 20120216
  Transmission Date: 20120608
  Serious: No
  Sender: FDA-Public Use
  Company Number: US-ABBOTT-12P-163-0905422-00

PATIENT
  Age: 44 Year
  Sex: Female
  Weight: 52.21 kg

DRUGS (1)
  1. LUPRON DEPOT [Suspect]
     Indication: ENDOMETRIOSIS
     Route: 030
     Dates: start: 20100201, end: 20100601

REACTIONS (1)
  - ARTHRALGIA [None]
